FAERS Safety Report 5417037-6 (Version None)
Quarter: 2007Q3

REPORT INFORMATION
  Report Type: 
  Country: None (occurrence: None)
  Receive Date: 20070816
  Receipt Date: 20070814
  Transmission Date: 20080115
  Serious: Yes (Other)
  Sender: FDA-Public Use
  Company Number: DE-ASTRAZENECA-2007PK01726

PATIENT
  Age: 84 Year
  Sex: Female
  Weight: 53 kg

DRUGS (10)
  1. BUPIVACAINE [Suspect]
     Indication: PAIN MANAGEMENT
     Route: 008
  2. BUPIVACAINE [Suspect]
     Route: 008
  3. BUPIVACAINE [Suspect]
     Route: 008
  4. MORPHINE [Concomitant]
     Indication: PAIN MANAGEMENT
  5. METAMIZOL [Concomitant]
     Indication: PAIN MANAGEMENT
  6. FENTANYL [Concomitant]
     Route: 042
  7. ASPIRIN [Concomitant]
  8. SIMVASTATIN [Concomitant]
  9. TRIASE [Concomitant]
  10. ABBOKINASE [Concomitant]

REACTIONS (2)
  - ANAESTHETIC COMPLICATION [None]
  - MEDICATION ERROR [None]
